FAERS Safety Report 4992393-1 (Version None)
Quarter: 2006Q2

REPORT INFORMATION
  Report Type: 
  Country: None (occurrence: None)
  Receive Date: 20060504
  Receipt Date: 20060426
  Transmission Date: 20061013
  Serious: Yes (Hospitalization)
  Sender: FDA-Public Use
  Company Number: NSADSS2001019726

PATIENT
  Sex: Male
  Weight: 71 kg

DRUGS (3)
  1. REMICADE [Suspect]
     Route: 041
     Dates: start: 20010401
  2. REMICADE [Suspect]
     Route: 041
     Dates: start: 20010401
  3. ACTRAPID INSULIN NOVO [Concomitant]
     Indication: DIABETES MELLITUS
     Route: 058
     Dates: start: 19950101

REACTIONS (1)
  - TUBERCULOSIS [None]
